FAERS Safety Report 12518648 (Version 2)
Quarter: 2017Q1

REPORT INFORMATION
  Report Type: Spontaneous
  Country: NO (occurrence: NO)
  Receive Date: 20160630
  Receipt Date: 20170207
  Transmission Date: 20170428
  Serious: Yes (Hospitalization, Other)
  Sender: FDA-Public Use
  Company Number: NO-GLAXOSMITHKLINE-NO2016GSK091715

PATIENT
  Age: 60 Year
  Sex: Male

DRUGS (6)
  1. LAMICTAL [Suspect]
     Active Substance: LAMOTRIGINE
     Indication: EPILEPSY
     Dosage: 25 MG, UNK
     Route: 048
     Dates: start: 20030909, end: 201410
  2. LAMICTAL [Suspect]
     Active Substance: LAMOTRIGINE
     Dosage: 125 MG, QD
     Dates: start: 20080216
  3. LAMICTAL [Suspect]
     Active Substance: LAMOTRIGINE
     Dosage: 150 MG, QD, IN THE MORNING
     Dates: start: 20140319
  4. TEGRETOL XR [Suspect]
     Active Substance: CARBAMAZEPINE
  5. LAMICTAL [Suspect]
     Active Substance: LAMOTRIGINE
     Dosage: 175 MG, QD, IN THE MORNING
  6. LAMICTAL [Suspect]
     Active Substance: LAMOTRIGINE
     Dosage: 50 MG, BID

REACTIONS (35)
  - Shoulder operation [Unknown]
  - Headache [Recovered/Resolved]
  - Disturbance in attention [Unknown]
  - Intentional product misuse [Unknown]
  - Sleep disorder [Recovered/Resolved]
  - Restlessness [Unknown]
  - Cognitive disorder [Unknown]
  - Mental disorder [Unknown]
  - Anxiety [Recovered/Resolved]
  - Fall [Unknown]
  - Somnambulism [Unknown]
  - Thermal burn [Unknown]
  - Stress [Unknown]
  - Condition aggravated [Unknown]
  - Suicidal ideation [Recovered/Resolved]
  - Depression [Recovered/Resolved]
  - Seizure [Unknown]
  - Insomnia [Unknown]
  - Nasal obstruction [Unknown]
  - Irritability [Unknown]
  - Antisocial behaviour [Unknown]
  - Memory impairment [Unknown]
  - Headache [Unknown]
  - Poor quality sleep [Unknown]
  - Terminal insomnia [Unknown]
  - Hand fracture [Unknown]
  - Epilepsy [Unknown]
  - Loss of consciousness [Unknown]
  - Intervertebral disc protrusion [Unknown]
  - Visual impairment [Unknown]
  - Amnesia [Unknown]
  - Road traffic accident [Unknown]
  - Rib fracture [Unknown]
  - Aggression [Recovered/Resolved]
  - Confusional state [Unknown]

NARRATIVE: CASE EVENT DATE: 2003
